FAERS Safety Report 7162919-0 (Version None)
Quarter: 2010Q4

REPORT INFORMATION
  Report Type: 
  Country: None (occurrence: None)
  Receive Date: 20101215
  Receipt Date: 20100125
  Transmission Date: 20110411
  Serious: Yes (Other)
  Sender: FDA-Public Use
  Company Number: US-PFIZER INC-2010011082

PATIENT
  Sex: Female
  Weight: 68.027 kg

DRUGS (3)
  1. LYRICA [Suspect]
     Indication: NEURALGIA
     Dosage: 75 MG, 2X/DAY
     Route: 048
     Dates: start: 20100104
  2. VALTREX [Concomitant]
     Indication: HERPES ZOSTER
  3. DIAZEPAM [Concomitant]
     Indication: MUSCLE SPASMS
     Dosage: UNK

REACTIONS (11)
  - CHEST PAIN [None]
  - EYE DISCHARGE [None]
  - FATIGUE [None]
  - FEELING ABNORMAL [None]
  - FEELING DRUNK [None]
  - MUSCULAR WEAKNESS [None]
  - OESOPHAGEAL PAIN [None]
  - SKIN DISCOLOURATION [None]
  - SKIN DISORDER [None]
  - TONGUE PARALYSIS [None]
  - VISION BLURRED [None]
